FAERS Safety Report 23430461 (Version 2)
Quarter: 2024Q1

REPORT INFORMATION
  Report Type: Spontaneous
  Country: CN (occurrence: CN)
  Receive Date: 20240123
  Receipt Date: 20240305
  Transmission Date: 20240410
  Serious: Yes (Hospitalization, Other)
  Sender: FDA-Public Use
  Company Number: CN-NOVOPROD-1156153

PATIENT
  Age: 65 Year
  Sex: Female
  Weight: 45 kg

DRUGS (2)
  1. INSULIN ASPART [Suspect]
     Active Substance: INSULIN ASPART
     Indication: Type 2 diabetes mellitus
     Dosage: 20 U IN THE MORNING AND 16-18 U IN THE EVENING
  2. INSULIN ASPART [Suspect]
     Active Substance: INSULIN ASPART
     Dosage: 16 IU, QD (8 U IN THE MORNING AND 8 U IN THE EVENING)

REACTIONS (6)
  - Cataract [Recovered/Resolved]
  - Diabetic retinopathy [Unknown]
  - Asthenia [Unknown]
  - Weight decreased [Unknown]
  - Hyperglycaemia [Recovered/Resolved]
  - Postprandial hypoglycaemia [Recovered/Resolved]
